FAERS Safety Report 14995928 (Version 1)
Quarter: 2018Q2

REPORT INFORMATION
  Report Type: Spontaneous
  Country: US (occurrence: US)
  Receive Date: 20180518
  Receipt Date: 20180518
  Transmission Date: 20180711
  Serious: Yes (Other)
  Sender: FDA-Public Use
  Company Number: None

PATIENT
  Age: 65 Year
  Sex: Female

DRUGS (13)
  1. CRESTOR [Concomitant]
     Active Substance: ROSUVASTATIN CALCIUM
  2. LATANOPROST. [Concomitant]
     Active Substance: LATANOPROST
  3. NOVOLOG [Concomitant]
     Active Substance: INSULIN ASPART
  4. PLAVIX [Concomitant]
     Active Substance: CLOPIDOGREL BISULFATE
  5. ASPIRIN. [Concomitant]
     Active Substance: ASPIRIN
  6. ZYRTEC [Concomitant]
     Active Substance: CETIRIZINE HYDROCHLORIDE
  7. PRALUENT [Suspect]
     Active Substance: ALIROCUMAB
     Indication: HYPERCHOLESTEROLAEMIA
     Route: 058
     Dates: start: 20180415, end: 20180518
  8. COENZYME Q10 [Concomitant]
     Active Substance: UBIDECARENONE
  9. LISINOPRIL/HCTZ [Concomitant]
     Active Substance: HYDROCHLOROTHIAZIDE\LISINOPRIL
  10. ZANAFLEX [Concomitant]
     Active Substance: TIZANIDINE HYDROCHLORIDE
  11. ACCU-CHECK ACTIVE TEST STRIP [Concomitant]
  12. COREG [Concomitant]
     Active Substance: CARVEDILOL
  13. TIMOPTIC [Concomitant]
     Active Substance: TIMOLOL MALEATE

REACTIONS (1)
  - Myalgia [None]

NARRATIVE: CASE EVENT DATE: 20180518
